FAERS Safety Report 9474805 (Version 1)
Quarter: 2013Q3

REPORT INFORMATION
  Report Type: Spontaneous
  Country: MW (occurrence: MW)
  Receive Date: 20130823
  Receipt Date: 20130823
  Transmission Date: 20140515
  Serious: Yes (Hospitalization)
  Sender: FDA-Public Use
  Company Number: PHHY2013MW089331

PATIENT
  Age: 25 Year
  Sex: Male

DRUGS (4)
  1. CO-TRIMOXAZOLE [Suspect]
     Indication: TUBERCULOSIS
     Dates: start: 201208
  2. NEVIRAPINE [Suspect]
  3. STAVUDINE [Concomitant]
  4. LAMIVUDINE [Concomitant]

REACTIONS (12)
  - Endophthalmitis [Unknown]
  - Visual acuity reduced [Unknown]
  - Foreign body sensation in eyes [Unknown]
  - Eyelid oedema [Unknown]
  - Symblepharon [Unknown]
  - Conjunctival oedema [Unknown]
  - Conjunctivitis [Unknown]
  - Eye disorder [Unknown]
  - Flat anterior chamber of eye [Unknown]
  - Eye inflammation [Unknown]
  - Blindness [Unknown]
  - Stevens-Johnson syndrome [Unknown]
